FAERS Safety Report 12987244 (Version 7)
Quarter: 2017Q1

REPORT INFORMATION
  Report Type: Spontaneous
  Country: US (occurrence: US)
  Receive Date: 20161130
  Receipt Date: 20170310
  Transmission Date: 20170428
  Serious: Yes (Hospitalization)
  Sender: FDA-Public Use
  Company Number: US-VIFOR (INTERNATIONAL) INC.-VIT-2016-07311

PATIENT
  Age: 70 Year
  Sex: Male
  Weight: 69 kg

DRUGS (21)
  1. PARACETAMOL [Concomitant]
     Active Substance: ACETAMINOPHEN
  2. AMOXICILLIN. [Concomitant]
     Active Substance: AMOXICILLIN
  3. BISACODYL. [Concomitant]
     Active Substance: BISACODYL
  4. ZANTAC [Concomitant]
     Active Substance: RANITIDINE HYDROCHLORIDE
  5. MIRCERA [Suspect]
     Active Substance: METHOXY POLYETHYLENE GLYCOL-EPOETIN BETA
     Indication: PRODUCT USED FOR UNKNOWN INDICATION
     Route: 040
     Dates: start: 20150211, end: 20150715
  6. AMIODARONE [Concomitant]
     Active Substance: AMIODARONE
  7. VITAMIN B COMPLEX [Concomitant]
     Active Substance: CYANOCOBALAMIN\DEXPANTHENOL\NIACINAMIDE\PYRIDOXINE HYDROCHLORIDE\RIBOFLAVIN 5^-PHOSPHATE SODIUM\THIAMINE HYDROCHLORIDE\VITAMIN B COMPLEX
  8. VELPHORO [Suspect]
     Active Substance: FERRIC OXYHYDROXIDE
     Indication: PRODUCT USED FOR UNKNOWN INDICATION
     Route: 048
  9. FINASTERIDE. [Concomitant]
     Active Substance: FINASTERIDE
  10. QUETIAPINE FUMARATE. [Concomitant]
     Active Substance: QUETIAPINE FUMARATE
  11. MAGNESIUM CITRATE/ZINC CITRATE [Concomitant]
  12. RENVELA [Concomitant]
     Active Substance: SEVELAMER CARBONATE
  13. DEPAKOTE [Concomitant]
     Active Substance: DIVALPROEX SODIUM
  14. METOPROLOL TARTRATE. [Concomitant]
     Active Substance: METOPROLOL TARTRATE
  15. MIDODRINE [Concomitant]
     Active Substance: MIDODRINE
  16. HEPARIN [Concomitant]
     Active Substance: HEPARIN SODIUM
     Indication: NEPHROGENIC ANAEMIA
     Route: 040
  17. VENOFER [Suspect]
     Active Substance: IRON SUCROSE
     Indication: PRODUCT USED FOR UNKNOWN INDICATION
     Route: 040
     Dates: start: 20131018
  18. ACETYLSALICYLIC ACID [Concomitant]
     Active Substance: ASPIRIN
  19. MAGNESIUM HYDROXIDE. [Concomitant]
     Active Substance: MAGNESIUM HYDROXIDE
  20. NEPHRO-VITE [Concomitant]
     Dosage: 1MG, 60-MG, 300-MCG
  21. SENSIPAR [Concomitant]
     Active Substance: CINACALCET HYDROCHLORIDE

REACTIONS (15)
  - Activated partial thromboplastin time prolonged [Unknown]
  - Hospitalisation [Unknown]
  - Lung infiltration [Unknown]
  - Hepatic infection [Unknown]
  - Asthenia [Unknown]
  - Rash [Recovered/Resolved]
  - Cardiomegaly [Unknown]
  - Motor dysfunction [Unknown]
  - Atelectasis [Unknown]
  - Pleural effusion [Unknown]
  - Coordination abnormal [Unknown]
  - Hepatic lesion [Unknown]
  - Thrombocytopenia [Unknown]
  - Lymphadenopathy [Unknown]
  - Skin lesion [Recovering/Resolving]

NARRATIVE: CASE EVENT DATE: 2015
